FAERS Safety Report 12037418 (Version 1)
Quarter: 2016Q1

REPORT INFORMATION
  Report Type: Spontaneous
  Country: US (occurrence: None)
  Receive Date: 20160205
  Receipt Date: 20160205
  Transmission Date: 20160526
  Serious: No
  Sender: FDA-Public Use
  Company Number: None

PATIENT
  Age: 75 Year
  Sex: Female

DRUGS (1)
  1. FORTEO [Suspect]
     Active Substance: TERIPARATIDE
     Route: 058
     Dates: start: 20151222

REACTIONS (4)
  - Oral pain [None]
  - Sinusitis [None]
  - Alopecia [None]
  - Pain [None]

NARRATIVE: CASE EVENT DATE: 20160201
